FAERS Safety Report 15824496 (Version 1)
Quarter: 2019Q1

REPORT INFORMATION
  Report Type: Spontaneous
  Country: PL (occurrence: PL)
  Receive Date: 20190115
  Receipt Date: 20190115
  Transmission Date: 20190417
  Serious: Yes (Hospitalization)
  Sender: FDA-Public Use
  Company Number: PL-TEVA-2019-PL-998223

PATIENT
  Age: 44 Year
  Sex: Male

DRUGS (2)
  1. BESPRES 160MG [Suspect]
     Active Substance: VALSARTAN
     Dosage: .5 DOSAGE FORMS DAILY; SOMETIME DOSE WAS REDUCED TO 0.5 DF (80 MG) - DATES UNKNOWN
     Route: 065
  2. BESPRES 160MG [Suspect]
     Active Substance: VALSARTAN
     Indication: HYPERTENSION
     Dosage: 160 MILLIGRAM DAILY; SOMETIME DOSE WAS REDUCED TO 0.5 DF (80 MG) - DATES UNKNOWN
     Route: 065
     Dates: start: 2014, end: 20190106

REACTIONS (5)
  - Asthenia [Recovering/Resolving]
  - Dizziness [Recovering/Resolving]
  - Arrhythmia [Recovered/Resolved]
  - Somnolence [Recovering/Resolving]
  - Palpitations [Recovered/Resolved]

NARRATIVE: CASE EVENT DATE: 20190106
